FAERS Safety Report 14099848 (Version 1)
Quarter: 2017Q4

REPORT INFORMATION
  Report Type: Spontaneous
  Country: US (occurrence: US)
  Receive Date: 20171017
  Receipt Date: 20171017
  Transmission Date: 20180321
  Serious: No
  Sender: FDA-Public Use
  Company Number: US-BIOMARINAP-US-2017-115680

PATIENT
  Age: 8 Month
  Sex: Male

DRUGS (1)
  1. KUVAN [Suspect]
     Active Substance: SAPROPTERIN DIHYDROCHLORIDE
     Indication: PHENYLKETONURIA
     Dosage: 200 MG, QD
     Route: 048
     Dates: start: 20171002

REACTIONS (2)
  - Psychomotor hyperactivity [Unknown]
  - Rash [Unknown]

NARRATIVE: CASE EVENT DATE: 20171005
